FAERS Safety Report 6746294-9 (Version None)
Quarter: 2010Q2

REPORT INFORMATION
  Report Type: 
  Country: None (occurrence: None)
  Receive Date: 20100528
  Receipt Date: 20100520
  Transmission Date: 20101027
  Serious: Yes (Other)
  Sender: FDA-Public Use
  Company Number: FI-ABBOTT-10P-055-0646316-00

PATIENT
  Age: 32 Year
  Sex: Male

DRUGS (2)
  1. DEPRAKINE RETARD [Suspect]
     Indication: EPILEPSY
     Dosage: 1500 MG DAILY
     Route: 048
     Dates: start: 20050503, end: 20091111
  2. TEGRETOL [Concomitant]
     Indication: DRUG USE FOR UNKNOWN INDICATION
     Dates: start: 20030221

REACTIONS (2)
  - PLEURAL EFFUSION [None]
  - PNEUMONIA [None]
